FAERS Safety Report 9746567 (Version 3)
Quarter: 2014Q1

REPORT INFORMATION
  Report Type: Report from Study
  Country: CA (occurrence: CA)
  Receive Date: 20131211
  Receipt Date: 20140117
  Transmission Date: 20141002
  Serious: Yes (Other)
  Sender: FDA-Public Use
  Company Number: CA-ABBVIE-13P-028-1143553-00

PATIENT
  Sex: Male
  Weight: 92.62 kg

DRUGS (4)
  1. HUMIRA [Suspect]
     Indication: ANKYLOSING SPONDYLITIS
     Route: 058
     Dates: start: 20130731, end: 201311
  2. HUMIRA [Suspect]
     Route: 058
     Dates: start: 20140108
  3. UNKNOWN MEDICATION [Concomitant]
     Indication: SLEEP DISORDER THERAPY
     Route: 048
  4. ANTIHYPERTENSIVES [Concomitant]
     Indication: HYPERTENSION
     Route: 048

REACTIONS (2)
  - Pain [Not Recovered/Not Resolved]
  - Cartilage injury [Unknown]
